FAERS Safety Report 8986160 (Version 1)
Quarter: 2012Q4

REPORT INFORMATION
  Report Type: Spontaneous
  Country: US (occurrence: None)
  Receive Date: 20121219
  Receipt Date: 20121219
  Transmission Date: 20130627
  Serious: Yes (Other)
  Sender: FDA-Public Use
  Company Number: None

PATIENT
  Age: 12 Year
  Sex: Male
  Weight: 35.38 kg

DRUGS (1)
  1. PURELAX [Suspect]
     Indication: RECTAL CLEANSING
     Dosage: 17 g daily po
     Route: 048
     Dates: start: 20121208, end: 20121210

REACTIONS (11)
  - Screaming [None]
  - Crying [None]
  - Confusional state [None]
  - Dizziness [None]
  - Feeling hot [None]
  - Thirst [None]
  - Blood chloride increased [None]
  - Headache [None]
  - Fatigue [None]
  - Mood altered [None]
  - Frequent bowel movements [None]
